FAERS Safety Report 23460262 (Version 2)
Quarter: 2025Q1

REPORT INFORMATION
  Report Type: Spontaneous
  Country: US (occurrence: US)
  Receive Date: 20240131
  Receipt Date: 20250307
  Transmission Date: 20250408
  Serious: Yes (Death, Other)
  Sender: SANOFI AVENTIS
  Company Number: US-SANOFI-01916325

PATIENT
  Age: 83 Year
  Sex: Male

DRUGS (1)
  1. CEREZYME [Suspect]
     Active Substance: IMIGLUCERASE
     Indication: Gaucher^s disease
     Dosage: 9 DF, QOW
     Dates: start: 20171113, end: 20250131

REACTIONS (1)
  - Death [Fatal]

NARRATIVE: CASE EVENT DATE: 20250201
